FAERS Safety Report 22524253 (Version 1)
Quarter: 2023Q2

REPORT INFORMATION
  Report Type: Spontaneous
  Country: CN (occurrence: CN)
  Receive Date: 20230606
  Receipt Date: 20230606
  Transmission Date: 20230721
  Serious: Yes (Other)
  Sender: FDA-Public Use
  Company Number: None

PATIENT
  Age: 51 Year
  Sex: Female
  Weight: 68 kg

DRUGS (7)
  1. CYCLOPHOSPHAMIDE [Suspect]
     Active Substance: CYCLOPHOSPHAMIDE
     Indication: Breast cancer female
     Dosage: 0.8 G, QD, DILUTED WITH 0.9%  SODIUM CHLORIDE 100 ML, AS A PART OF TC REGIMEN, 3RD CYCLE OF CHEMOTHE
     Route: 041
     Dates: start: 20230515, end: 20230515
  2. CYCLOPHOSPHAMIDE [Suspect]
     Active Substance: CYCLOPHOSPHAMIDE
     Indication: Chemotherapy
  3. DOCETAXEL [Suspect]
     Active Substance: DOCETAXEL
     Indication: Breast cancer female
     Dosage: 90 MG, QD, DILUTED WITH 0.9% SODIUM CHLORIDE INJECTION 250ML, FULL DOSE, AS A PART OF TC REGIMEN, 3R
     Route: 041
     Dates: start: 20230515, end: 20230515
  4. DOCETAXEL [Suspect]
     Active Substance: DOCETAXEL
     Indication: Chemotherapy
     Dosage: AT 9:00, 20 MG, QD, DILUTED WITH 0.9% SODIUM CHLORIDE INJECTION 100ML, FIRST SLOWLY AND THEN QUICKLY
     Route: 041
     Dates: start: 20230515, end: 20230515
  5. SODIUM CHLORIDE [Suspect]
     Active Substance: SODIUM CHLORIDE
     Indication: Medication dilution
     Dosage: 250 ML, QD, USED TO DILUTE DOCETAXEL 90 MG, FULL DOSE, AS A PART OF TC REGIMEN, 3RD CYCLE OF CHEMOTH
     Route: 041
     Dates: start: 20230515, end: 20230515
  6. SODIUM CHLORIDE [Suspect]
     Active Substance: SODIUM CHLORIDE
     Dosage: 100 ML, QD, USED TO DILUTE CYCLOPHOSPHAMIDE 800 MG, AS A PART OF TC REGIMEN, 3RD CYCLE OF CHEMOTHERA
     Route: 041
     Dates: start: 20230515, end: 20230515
  7. SODIUM CHLORIDE [Suspect]
     Active Substance: SODIUM CHLORIDE
     Dosage: AT 9:00, 100 ML, QD, USED TO DILUTE DOCETAXEL 20MG, AS A PART OF TC REGIMEN, 3RD CYCLE OF CHEMOTHERA
     Route: 041
     Dates: start: 20230515, end: 20230515

REACTIONS (3)
  - Hypocalcaemia [Recovering/Resolving]
  - White blood cell count decreased [Recovering/Resolving]
  - Neutrophil count decreased [Recovering/Resolving]

NARRATIVE: CASE EVENT DATE: 20230522
